FAERS Safety Report 4998381-3 (Version None)
Quarter: 2006Q2

REPORT INFORMATION
  Report Type: 
  Country: None (occurrence: None)
  Receive Date: 20060510
  Receipt Date: 20060428
  Transmission Date: 20061013
  Serious: Yes (Hospitalization)
  Sender: FDA-Public Use
  Company Number: JP-BRISTOL-MYERS SQUIBB COMPANY-13370168

PATIENT
  Age: 25 Year
  Sex: Female

DRUGS (6)
  1. IFOMIDE [Suspect]
     Indication: EWING'S SARCOMA
  2. CISPLATIN [Suspect]
     Indication: EWING'S SARCOMA
  3. ETOPOSIDE [Suspect]
     Indication: EWING'S SARCOMA
  4. METHOTREXATE [Suspect]
     Indication: EWING'S SARCOMA
  5. CAFFEINE [Suspect]
     Indication: EWING'S SARCOMA
  6. ADRIACIN [Suspect]
     Indication: EWING'S SARCOMA

REACTIONS (4)
  - ABASIA [None]
  - BONE MARROW FAILURE [None]
  - DISSEMINATED INTRAVASCULAR COAGULATION [None]
  - SEPSIS [None]
